FAERS Safety Report 22940984 (Version 3)
Quarter: 2023Q4

REPORT INFORMATION
  Report Type: Report from Study
  Country: DE (occurrence: DE)
  Receive Date: 20230913
  Receipt Date: 20231116
  Transmission Date: 20240110
  Serious: Yes (Hospitalization, Other)
  Sender: FDA-Public Use
  Company Number: DE-BAYER-2023A127312

PATIENT
  Age: 19 Year
  Sex: Female

DRUGS (4)
  1. LEVONORGESTREL [Suspect]
     Active Substance: LEVONORGESTREL
     Indication: Contraception
     Dosage: 14?G/DAY
     Route: 015
     Dates: start: 20230213
  2. FLUOXETINE [Concomitant]
     Active Substance: FLUOXETINE HYDROCHLORIDE
     Indication: Depression
     Dosage: UNK
     Dates: start: 2020
  3. FLUOXETINE [Concomitant]
     Active Substance: FLUOXETINE HYDROCHLORIDE
     Indication: Depression
     Dosage: UNK
     Dates: start: 2022
  4. METHYLPHENIDATE [Concomitant]
     Active Substance: METHYLPHENIDATE

REACTIONS (4)
  - Suicide attempt [Not Recovered/Not Resolved]
  - Borderline personality disorder [Not Recovered/Not Resolved]
  - Depression suicidal [Not Recovered/Not Resolved]
  - Bulimia nervosa [Not Recovered/Not Resolved]

NARRATIVE: CASE EVENT DATE: 20230701
